FAERS Safety Report 14035398 (Version 1)
Quarter: 2017Q4

REPORT INFORMATION
  Report Type: Report from Study
  Country: JP (occurrence: JP)
  Receive Date: 20171003
  Receipt Date: 20171003
  Transmission Date: 20180321
  Serious: Yes (Other)
  Sender: FDA-Public Use
  Company Number: JP-MYLANLABS-2017M1061969

PATIENT
  Age: 51 Year
  Sex: Male

DRUGS (1)
  1. AZITHROMYCIN ANHYDROUS. [Suspect]
     Active Substance: AZITHROMYCIN ANHYDROUS
     Indication: URETHRITIS MYCOPLASMAL
     Dosage: SINGLE DOSE REGIMEN
     Route: 065

REACTIONS (1)
  - Pathogen resistance [Recovered/Resolved]
